FAERS Safety Report 10621074 (Version 1)
Quarter: 2014Q4

REPORT INFORMATION
  Report Type: Report from Study
  Country: US (occurrence: US)
  Receive Date: 20141203
  Receipt Date: 20141203
  Transmission Date: 20150529
  Serious: Yes (Hospitalization)
  Sender: FDA-Public Use
  Company Number: US-ROCHE-1498450

PATIENT
  Age: 49 Year
  Sex: Male

DRUGS (9)
  1. PEGINTERFERON ALFA-2A [Suspect]
     Active Substance: PEGINTERFERON ALFA-2A
     Indication: CHRONIC HEPATITIS C
     Route: 065
     Dates: start: 20120913
  2. CELEXA (UNITED STATES) [Concomitant]
     Route: 065
  3. SEROQUEL [Concomitant]
     Active Substance: QUETIAPINE FUMARATE
     Route: 065
  4. DEPAKOTE [Concomitant]
     Active Substance: DIVALPROEX SODIUM
     Route: 065
  5. TRAZODONE [Concomitant]
     Active Substance: TRAZODONE HYDROCHLORIDE
     Route: 065
  6. RIBAVIRIN. [Suspect]
     Active Substance: RIBAVIRIN
     Route: 065
  7. CELEXA (UNITED STATES) [Concomitant]
     Route: 065
  8. RIBAVIRIN. [Suspect]
     Active Substance: RIBAVIRIN
     Indication: CHRONIC HEPATITIS C
     Route: 065
     Dates: start: 20120913
  9. SEROQUEL [Concomitant]
     Active Substance: QUETIAPINE FUMARATE
     Route: 065

REACTIONS (12)
  - Mental disorder [Unknown]
  - Hyperhidrosis [Unknown]
  - Depression [Unknown]
  - Abdominal discomfort [Unknown]
  - Homicidal ideation [Unknown]
  - Influenza like illness [Unknown]
  - Suicidal ideation [Unknown]
  - Pharyngeal disorder [Unknown]
  - Rash [Unknown]
  - Feeling cold [Unknown]
  - Aggression [Unknown]
  - Weight increased [Unknown]

NARRATIVE: CASE EVENT DATE: 20121108
